FAERS Safety Report 24361013 (Version 1)
Quarter: 2024Q3

REPORT INFORMATION
  Report Type: Spontaneous
  Country: IN (occurrence: IN)
  Receive Date: 20240925
  Receipt Date: 20240925
  Transmission Date: 20241016
  Serious: Yes (Death)
  Sender: ROCHE
  Company Number: IN-ROCHE-3538032

PATIENT
  Age: 35 Year
  Sex: Male

DRUGS (1)
  1. TECENTRIQ [Suspect]
     Active Substance: ATEZOLIZUMAB
     Indication: Pancreatic carcinoma metastatic
     Route: 041
     Dates: start: 20240318

REACTIONS (2)
  - Off label use [Unknown]
  - Neoplasm malignant [Fatal]

NARRATIVE: CASE EVENT DATE: 20240913
